FAERS Safety Report 4285674-0 (Version None)
Quarter: 2004Q1

REPORT INFORMATION
  Report Type: 
  Country: None (occurrence: None)
  Receive Date: 20040202
  Receipt Date: 20040128
  Transmission Date: 20041129
  Serious: Yes (Hospitalization)
  Sender: FDA-Public Use
  Company Number: 2004196412US

PATIENT
  Age: 80 Year
  Sex: Female

DRUGS (3)
  1. MIRAPEX [Suspect]
     Indication: PARKINSON'S DISEASE
     Dosage: 1.5 MG/DAY, ORAL
     Route: 048
     Dates: start: 19930101, end: 20031230
  2. SINEMET [Concomitant]
  3. COMTAN [Concomitant]

REACTIONS (2)
  - CEREBROVASCULAR ACCIDENT [None]
  - DYSPHAGIA [None]
